FAERS Safety Report 10244820 (Version 4)
Quarter: 2014Q4

REPORT INFORMATION
  Report Type: Report from Study
  Country: US (occurrence: US)
  Receive Date: 20140618
  Receipt Date: 20141210
  Transmission Date: 20150528
  Serious: Yes (Hospitalization)
  Sender: FDA-Public Use
  Company Number: US-ACTELION-A-NJ2014-100241

PATIENT
  Age: 72 Year
  Sex: Female

DRUGS (2)
  1. TRACLEER [Suspect]
     Active Substance: BOSENTAN\BOSENTAN MONOHYDRATE
     Indication: COR PULMONALE CHRONIC
     Dosage: UNK
     Route: 048
  2. COUMADIN [Concomitant]
     Active Substance: WARFARIN SODIUM

REACTIONS (6)
  - Blood pressure abnormal [Unknown]
  - Dyspnoea exertional [Unknown]
  - Asthenia [Unknown]
  - Hypertension [Unknown]
  - Blood pressure decreased [Unknown]
  - Atrial fibrillation [Unknown]

NARRATIVE: CASE EVENT DATE: 20141003
